FAERS Safety Report 6452421-3 (Version None)
Quarter: 2009Q4

REPORT INFORMATION
  Report Type: 
  Country: None (occurrence: None)
  Receive Date: 20091123
  Receipt Date: 20091109
  Transmission Date: 20100525
  Serious: Yes (Death, Other)
  Sender: FDA-Public Use
  Company Number: CH-GENENTECH-294221

PATIENT
  Sex: Male

DRUGS (5)
  1. BEVACIZUMAB [Suspect]
     Indication: GLIOBLASTOMA MULTIFORME
     Dosage: UNK
     Route: 065
     Dates: start: 20070813, end: 20090701
  2. TEMOZOLOMIDE [Concomitant]
     Indication: DRUG USE FOR UNKNOWN INDICATION
  3. LOMUSTINE [Concomitant]
     Indication: DRUG USE FOR UNKNOWN INDICATION
  4. ERLOTINIB [Concomitant]
     Indication: DRUG USE FOR UNKNOWN INDICATION
  5. SIROLIMUS [Concomitant]
     Indication: DRUG USE FOR UNKNOWN INDICATION

REACTIONS (3)
  - DEATH [None]
  - LEUKOPENIA [None]
  - THROMBOCYTOPENIA [None]
